FAERS Safety Report 9125314 (Version 1)
Quarter: 2013Q1

REPORT INFORMATION
  Report Type: Spontaneous
  Country: IT (occurrence: IT)
  Receive Date: 20130227
  Receipt Date: 20130227
  Transmission Date: 20140127
  Serious: Yes (Hospitalization)
  Sender: FDA-Public Use
  Company Number: PHHY2013IT018635

PATIENT
  Age: 73 Year
  Sex: Male

DRUGS (7)
  1. VALSARTAN [Suspect]
     Dosage: 40 MG, DAY
     Route: 048
     Dates: start: 20120119, end: 20130118
  2. LASIX [Suspect]
     Dosage: 25 MG, DAY
     Route: 048
     Dates: start: 20120119, end: 20130118
  3. SIVASTIN [Concomitant]
  4. NITROCOR [Concomitant]
  5. CARDIOASPIRIN [Concomitant]
  6. BISOPROLOL [Concomitant]
  7. ALLOPURINOL [Concomitant]

REACTIONS (2)
  - Renal failure acute [Not Recovered/Not Resolved]
  - Syncope [Not Recovered/Not Resolved]
